FAERS Safety Report 6790822-4 (Version None)
Quarter: 2010Q2

REPORT INFORMATION
  Report Type: 
  Country: None (occurrence: None)
  Receive Date: 20100623
  Receipt Date: 20100623
  Transmission Date: 20101027
  Serious: Yes (Hospitalization)
  Sender: FDA-Public Use
  Company Number: None

PATIENT
  Age: 68 Year
  Sex: Male

DRUGS (2)
  1. WARFARIN [Suspect]
     Indication: ATRIAL FIBRILLATION
     Dates: start: 20100509, end: 20100521
  2. ENOXAPARIN [Suspect]
     Indication: ATRIAL FIBRILLATION
     Dosage: 80 MG BID SQ
     Route: 058
     Dates: start: 20100509, end: 20100521

REACTIONS (2)
  - HAEMATOMA [None]
  - HAEMOGLOBIN DECREASED [None]
